FAERS Safety Report 15335100 (Version 1)
Quarter: 2018Q3

REPORT INFORMATION
  Report Type: Spontaneous
  Country: US (occurrence: US)
  Receive Date: 20180827
  Receipt Date: 20180827
  Transmission Date: 20181010
  Serious: No
  Sender: FDA-Public Use
  Company Number: None

PATIENT
  Age: 47 Year
  Sex: Female
  Weight: 76.5 kg

DRUGS (5)
  1. HAIR SUPPLEMENTS FOR HAIR, SKIN + NAILS [Concomitant]
  2. ELIQUIS [Suspect]
     Active Substance: APIXABAN
     Indication: PULMONARY EMBOLISM
     Route: 048
     Dates: start: 20170806, end: 20180208
  3. ASPIRIN 81MG [Concomitant]
     Active Substance: ASPIRIN
  4. ELIQUIS [Suspect]
     Active Substance: APIXABAN
     Indication: DEEP VEIN THROMBOSIS
     Route: 048
     Dates: start: 20170806, end: 20180208
  5. BIOTIN [Concomitant]
     Active Substance: BIOTIN

REACTIONS (3)
  - Alopecia [None]
  - Hair disorder [None]
  - Trichorrhexis [None]

NARRATIVE: CASE EVENT DATE: 20180601
